FAERS Safety Report 20663341 (Version 1)
Quarter: 2022Q1

REPORT INFORMATION
  Report Type: Spontaneous
  Country: US (occurrence: None)
  Receive Date: 20220331
  Receipt Date: 20220331
  Transmission Date: 20220423
  Serious: No
  Sender: FDA-Public Use
  Company Number: None

PATIENT
  Age: 53 Year

DRUGS (1)
  1. HUMIRA [Suspect]
     Active Substance: ADALIMUMAB
     Dosage: FREQUENCY : EVERY OTHER WEEK;?
     Route: 058

REACTIONS (5)
  - Abdominal discomfort [None]
  - Vomiting [None]
  - Headache [None]
  - Pruritus [None]
  - Throat tightness [None]

NARRATIVE: CASE EVENT DATE: 20220329
